FAERS Safety Report 7551604-9 (Version None)
Quarter: 2011Q2

REPORT INFORMATION
  Report Type: 
  Country: None (occurrence: None)
  Receive Date: 20110616
  Receipt Date: 20110107
  Transmission Date: 20111010
  Serious: Yes (Other)
  Sender: FDA-Public Use
  Company Number: US-BAYER-201032636NA

PATIENT
  Sex: Female
  Weight: 65.76 kg

DRUGS (9)
  1. MULTI-VITAMINS [Concomitant]
  2. POTASSIUM CHLORIDE [Concomitant]
  3. VITAMIN E [Concomitant]
  4. NAPROXEN [Concomitant]
     Dosage: UNK UNK, PRN
  5. DARVOCET-N 50 [Concomitant]
     Indication: PAIN
  6. IMETRIX [Concomitant]
     Indication: HEADACHE
     Dosage: UNK
     Dates: start: 20020401
  7. YASMIN [Suspect]
     Indication: PREMENSTRUAL SYNDROME
     Route: 048
     Dates: start: 20020813, end: 20040916
  8. YASMIN [Suspect]
  9. CALCIUM CARBONATE [Concomitant]

REACTIONS (4)
  - MIGRAINE [None]
  - GALLBLADDER DISORDER [None]
  - CHOLECYSTITIS CHRONIC [None]
  - ABDOMINAL PAIN UPPER [None]
